FAERS Safety Report 25039101 (Version 1)
Quarter: 2025Q1

REPORT INFORMATION
  Report Type: Report from Study
  Country: DE (occurrence: DE)
  Receive Date: 20250305
  Receipt Date: 20250305
  Transmission Date: 20250409
  Serious: Yes (Death, Other)
  Sender: SANDOZ
  Company Number: DE-SANDOZ-SDZ2025DE013271

PATIENT
  Sex: Male

DRUGS (1)
  1. ADALIMUMAB [Suspect]
     Active Substance: ADALIMUMAB
     Indication: Psoriatic arthropathy
     Dosage: 40MG EVERY 2 WEEKS
     Route: 065
     Dates: start: 20210825

REACTIONS (1)
  - Death [Fatal]

NARRATIVE: CASE EVENT DATE: 20240808
